FAERS Safety Report 9803385 (Version 1)
Quarter: 2014Q1

REPORT INFORMATION
  Report Type: Spontaneous
  Country: GR (occurrence: GR)
  Receive Date: 20140108
  Receipt Date: 20140108
  Transmission Date: 20141002
  Serious: Yes (Life-Threatening)
  Sender: FDA-Public Use
  Company Number: GR-SA-2014SA000876

PATIENT
  Age: 80 Year
  Sex: Female

DRUGS (10)
  1. LANTUS SOLOSTAR [Suspect]
     Indication: PRODUCT USED FOR UNKNOWN INDICATION
     Route: 065
  2. APIDRA SOLOSTAR [Suspect]
     Indication: PRODUCT USED FOR UNKNOWN INDICATION
     Dosage: DOSE=8 IU AT NOON, 4 IU IN THE EVENING
     Route: 058
  3. APIDRA SOLOSTAR [Suspect]
     Indication: PRODUCT USED FOR UNKNOWN INDICATION
     Dosage: DOSE: 12 IU AT NOON
     Route: 058
     Dates: start: 20140103
  4. SOLOSTAR [Concomitant]
     Indication: DEVICE THERAPY
  5. SOLOSTAR [Concomitant]
     Indication: DEVICE THERAPY
  6. SOLOSTAR [Concomitant]
     Indication: DEVICE THERAPY
     Dates: start: 20140103
  7. LYRICA [Concomitant]
  8. GLUCOPHAGE [Concomitant]
  9. ATORVASTATIN [Concomitant]
  10. EPROSARTAN MESILATE/HYDROCHLOROTHIAZIDE [Concomitant]

REACTIONS (2)
  - Hypotension [Unknown]
  - Hyperglycaemia [Unknown]
